FAERS Safety Report 19792630 (Version 3)
Quarter: 2021Q4

REPORT INFORMATION
  Report Type: Report from Study
  Country: AR (occurrence: AR)
  Receive Date: 20210906
  Receipt Date: 20211118
  Transmission Date: 20220304
  Serious: Yes (Other)
  Sender: FDA-Public Use
  Company Number: AR-BRISTOL-MYERS SQUIBB COMPANY-BMS-2021-087655

PATIENT
  Age: 74 Year
  Sex: Male

DRUGS (5)
  1. APIXABAN [Suspect]
     Active Substance: APIXABAN
     Indication: Cerebrovascular accident prophylaxis
     Dosage: 5 MILLIGRAM, BID
     Route: 065
     Dates: start: 202007
  2. APIXABAN [Suspect]
     Active Substance: APIXABAN
     Indication: Cardiac pacemaker insertion
     Dosage: 2.5 MILLIGRAM, BID
     Route: 065
  3. APIXABAN [Suspect]
     Active Substance: APIXABAN
     Indication: Arrhythmia
     Dosage: 2.5 MILLIGRAM, QD
     Route: 065
     Dates: start: 2021
  4. LOSARTAN [Concomitant]
     Active Substance: LOSARTAN
     Indication: Product used for unknown indication
     Dosage: 100 MILLIGRAM DAILY
     Route: 065
  5. VERAPAMIL [Concomitant]
     Active Substance: VERAPAMIL HYDROCHLORIDE
     Indication: Product used for unknown indication
     Dosage: 200 MILLIGRAM DAILY
     Route: 065
     Dates: start: 2016

REACTIONS (5)
  - Diverticulum intestinal haemorrhagic [Unknown]
  - Diverticulum [Recovered/Resolved]
  - Haemorrhoids [Recovered/Resolved]
  - Lower gastrointestinal haemorrhage [Recovered/Resolved]
  - Intentional product use issue [Unknown]

NARRATIVE: CASE EVENT DATE: 20210101
